FAERS Safety Report 23344272 (Version 2)
Quarter: 2024Q1

REPORT INFORMATION
  Report Type: Report from Study
  Country: CA (occurrence: CA)
  Receive Date: 20231228
  Receipt Date: 20240201
  Transmission Date: 20240410
  Serious: Yes (Other)
  Sender: FDA-Public Use
  Company Number: CA-BIOGEN-2023BI01242533

PATIENT
  Sex: Female

DRUGS (1)
  1. DALFAMPRIDINE [Suspect]
     Active Substance: DALFAMPRIDINE
     Indication: Multiple sclerosis
     Route: 050
     Dates: start: 20231126, end: 20240127

REACTIONS (3)
  - Neoplasm malignant [Unknown]
  - Tremor [Unknown]
  - Therapy non-responder [Unknown]
